FAERS Safety Report 17485569 (Version 1)
Quarter: 2020Q1

REPORT INFORMATION
  Report Type: Spontaneous
  Country: US (occurrence: US)
  Receive Date: 20200302
  Receipt Date: 20200302
  Transmission Date: 20200409
  Serious: No
  Sender: FDA-Public Use
  Company Number: US-SA-2020SA052710

PATIENT
  Sex: Female
  Weight: 49.43 kg

DRUGS (5)
  1. EPINEPHRINE. [Concomitant]
     Active Substance: EPINEPHRINE
     Dosage: UNK, UNK
     Route: 065
  2. NORMAL SALINE [Concomitant]
     Active Substance: SODIUM CHLORIDE
     Dosage: UNK, UNK
     Route: 065
  3. STERILE WATER [Concomitant]
     Active Substance: WATER
     Dosage: UNK, UNK
     Route: 065
  4. CEREZYME [Suspect]
     Active Substance: IMIGLUCERASE
     Indication: FABRY^S DISEASE
     Dosage: 3200 (UNITS: UNK), QOW
     Route: 042
     Dates: start: 19990201
  5. SODIUM CHLORIDE. [Concomitant]
     Active Substance: SODIUM CHLORIDE
     Dosage: UNK, UNK
     Route: 065

REACTIONS (2)
  - Product use in unapproved indication [Unknown]
  - Nasopharyngitis [Unknown]
